FAERS Safety Report 15240409 (Version 1)
Quarter: 2018Q3

REPORT INFORMATION
  Report Type: Spontaneous
  Country: US (occurrence: US)
  Receive Date: 20180804
  Receipt Date: 20180804
  Transmission Date: 20181010
  Serious: Yes (Hospitalization, Other)
  Sender: FDA-Public Use
  Company Number: US-AUROBINDO-AUR-APL-2018-039315

PATIENT
  Age: 42 Year
  Sex: Female

DRUGS (2)
  1. SYNTHROID [Concomitant]
     Active Substance: LEVOTHYROXINE SODIUM
     Indication: HYPOTHYROIDISM
  2. VALACICLOVIR [Suspect]
     Active Substance: VALACYCLOVIR HYDROCHLORIDE
     Indication: ORAL HERPES
     Dosage: 4 GRAM, ONCE A DAY, (TWO TO THREE HOURS AFTER THE INGESTION)
     Route: 048

REACTIONS (7)
  - Acute kidney injury [Recovered/Resolved]
  - Nausea [Unknown]
  - Pyuria [Unknown]
  - Dizziness [Unknown]
  - Haematuria [Unknown]
  - Flank pain [Unknown]
  - Drug administration error [Unknown]
